FAERS Safety Report 11363699 (Version 1)
Quarter: 2015Q3

REPORT INFORMATION
  Report Type: Spontaneous
  Country: US (occurrence: None)
  Receive Date: 20150810
  Receipt Date: 20150810
  Transmission Date: 20151125
  Serious: Yes (Other)
  Sender: FDA-Public Use
  Company Number: None

PATIENT
  Age: 44 Year
  Sex: Female

DRUGS (2)
  1. STELARA [Suspect]
     Active Substance: USTEKINUMAB
     Indication: PSORIATIC ARTHROPATHY
     Dosage: ORAL A12W?
     Route: 058
     Dates: start: 20150501
  2. STELARA [Suspect]
     Active Substance: USTEKINUMAB
     Indication: PSORIASIS
     Dosage: ORAL A12W?
     Route: 058
     Dates: start: 20150501

REACTIONS (2)
  - Alopecia [None]
  - Drug ineffective [None]

NARRATIVE: CASE EVENT DATE: 20150601
